FAERS Safety Report 11060858 (Version 1)
Quarter: 2015Q2

REPORT INFORMATION
  Report Type: Spontaneous
  Country: US (occurrence: US)
  Receive Date: 20150424
  Receipt Date: 20150424
  Transmission Date: 20150821
  Serious: Yes (Other)
  Sender: FDA-Public Use
  Company Number: US-NOVEN PHARMACEUTICALS, INC.-15US013215

PATIENT
  Age: 52 Year
  Sex: Female
  Weight: 62.59 kg

DRUGS (2)
  1. BRISDELLE [Suspect]
     Active Substance: PAROXETINE MESYLATE
     Indication: HOT FLUSH
     Dosage: 7.5 MG, EVENING
     Route: 048
     Dates: start: 20141202, end: 20141231
  2. PROGESTERONE. [Concomitant]
     Active Substance: PROGESTERONE
     Indication: HOT FLUSH
     Dosage: UNK
     Dates: start: 20141202

REACTIONS (5)
  - Fear [Not Recovered/Not Resolved]
  - Crying [Recovered/Resolved]
  - Suicidal behaviour [Recovered/Resolved]
  - Tremor [Unknown]
  - Suicidal ideation [Recovered/Resolved]

NARRATIVE: CASE EVENT DATE: 201412
